FAERS Safety Report 17517856 (Version 1)
Quarter: 2020Q1

REPORT INFORMATION
  Report Type: Report from Study
  Country: JP (occurrence: JP)
  Receive Date: 20200309
  Receipt Date: 20200309
  Transmission Date: 20200409
  Serious: Yes (Other)
  Sender: FDA-Public Use
  Company Number: JP-ACTELION-A-CH2019-199943

PATIENT
  Age: 69 Year
  Sex: Female

DRUGS (7)
  1. TOCOPHEROL [Concomitant]
     Active Substance: TOCOPHEROL
  2. TRACLEER [Suspect]
     Active Substance: BOSENTAN
     Indication: SCLERODERMA ASSOCIATED DIGITAL ULCER
     Dosage: 62.5 MG, BID
     Route: 048
     Dates: start: 20181130, end: 20181204
  3. LANSOPRAZOLE. [Concomitant]
     Active Substance: LANSOPRAZOLE
  4. BERAPROST NA [Concomitant]
     Active Substance: BERAPROST SODIUM
  5. PREDNISOLONE. [Concomitant]
     Active Substance: PREDNISOLONE
  6. LIXIANA [Concomitant]
     Active Substance: EDOXABAN TOSYLATE
  7. BENIDIPINE HYDROCHLORIDE [Concomitant]
     Active Substance: BENIDIPINE HYDROCHLORIDE

REACTIONS (6)
  - Pneumonia aspiration [Unknown]
  - Peripheral circulatory failure [Unknown]
  - Foot amputation [Unknown]
  - Peripheral arterial occlusive disease [Unknown]
  - Toe amputation [Unknown]
  - Concomitant disease aggravated [Unknown]

NARRATIVE: CASE EVENT DATE: 20181204
